FAERS Safety Report 9271885 (Version 5)
Quarter: 2014Q1

REPORT INFORMATION
  Report Type: Report from Study
  Country: GB (occurrence: GB)
  Receive Date: 20130506
  Receipt Date: 20140115
  Transmission Date: 20141002
  Serious: Yes (Death)
  Sender: FDA-Public Use
  Company Number: GB-SANOFI-AVENTIS-2013SA045680

PATIENT
  Age: 69 Year
  Sex: Male
  Weight: 90.9 kg

DRUGS (7)
  1. CABAZITAXEL [Suspect]
     Indication: PROSTATE CANCER METASTATIC
     Route: 042
     Dates: start: 20130311, end: 20130311
  2. CABAZITAXEL [Suspect]
     Indication: PROSTATE CANCER METASTATIC
     Route: 042
     Dates: start: 20130422, end: 20130422
  3. ANTINEOPLASTIC AGENTS [Suspect]
     Indication: PROSTATE CANCER METASTATIC
     Route: 048
     Dates: start: 20130311, end: 20130429
  4. PREDNISONE [Suspect]
     Indication: PROSTATE CANCER METASTATIC
     Route: 048
     Dates: start: 20130311, end: 20130429
  5. AMLODIPINE [Concomitant]
     Route: 048
     Dates: start: 20111221
  6. LANSOPRAZOLE [Concomitant]
     Route: 048
     Dates: start: 201212
  7. LACTULOSE [Concomitant]
     Route: 048
     Dates: start: 20130315

REACTIONS (1)
  - Disease progression [Fatal]
